FAERS Safety Report 17676834 (Version 1)
Quarter: 2020Q2

REPORT INFORMATION
  Report Type: Spontaneous
  Country: GB (occurrence: GB)
  Receive Date: 20200416
  Receipt Date: 20200416
  Transmission Date: 20200714
  Serious: Yes (Hospitalization, Other)
  Sender: FDA-Public Use
  Company Number: GB-ALLERGAN-2015581US

PATIENT
  Sex: Female
  Weight: 66 kg

DRUGS (2)
  1. CLOPIDOGREL [Concomitant]
     Active Substance: CLOPIDOGREL BISULFATE
     Indication: PRODUCT USED FOR UNKNOWN INDICATION
     Route: 065
  2. CITALOPRAM HYDROBROMIDE - BP [Suspect]
     Active Substance: CITALOPRAM HYDROBROMIDE
     Indication: DEPRESSION
     Dosage: OVERDOSE: 30MG DAILY AT NIGHT
     Route: 048

REACTIONS (5)
  - Loss of consciousness [Unknown]
  - Sinus bradycardia [Unknown]
  - Orthostatic hypotension [Unknown]
  - Syncope [Unknown]
  - Overdose [Unknown]
